FAERS Safety Report 17531911 (Version 1)
Quarter: 2020Q1

REPORT INFORMATION
  Report Type: Spontaneous
  Country: US (occurrence: US)
  Receive Date: 20200304
  Receipt Date: 20200304
  Transmission Date: 20200409
  Serious: Yes (Hospitalization)
  Sender: FDA-Public Use
  Company Number: None

PATIENT
  Age: 67 Year
  Sex: Female
  Weight: 61.9 kg

DRUGS (1)
  1. ASPIRIN. [Suspect]
     Active Substance: ASPIRIN
     Dates: end: 20191014

REACTIONS (4)
  - Procedural nausea [None]
  - Breast reconstruction [None]
  - Procedural vomiting [None]
  - Post procedural infection [None]

NARRATIVE: CASE EVENT DATE: 20191025
